FAERS Safety Report 10085942 (Version 1)
Quarter: 2014Q2

REPORT INFORMATION
  Report Type: Spontaneous
  Country: AU (occurrence: None)
  Receive Date: 20140409
  Receipt Date: 20140409
  Transmission Date: 20141212
  Serious: Yes (Other)
  Sender: FDA-Public Use
  Company Number: GAM-083-14-AU

PATIENT
  Age: 53 Year
  Sex: Female
  Weight: 72 kg

DRUGS (6)
  1. OCTAGAM [Suspect]
     Indication: PEMPHIGOID
     Dosage: 70 MG (1X1/MONTH)
     Route: 042
     Dates: start: 20140403, end: 20140403
  2. DEXAMETHASONE [Concomitant]
  3. PREDNISOLONE [Concomitant]
  4. SULFAMETHOXAZOLE + TRIMETHOPRIM [Concomitant]
  5. OMEPRAZOLE [Concomitant]
  6. ESOMEPRAZOLE [Concomitant]

REACTIONS (10)
  - Hyperhidrosis [None]
  - Cold sweat [None]
  - Nausea [None]
  - Hypotension [None]
  - Heart rate decreased [None]
  - Dyspepsia [None]
  - Infusion related reaction [None]
  - Body temperature decreased [None]
  - Similar reaction on previous exposure to drug [None]
  - Feeling abnormal [None]
